FAERS Safety Report 5104386-4 (Version None)
Quarter: 2006Q3

REPORT INFORMATION
  Report Type: 
  Country: None (occurrence: None)
  Receive Date: 20060908
  Receipt Date: 20060908
  Transmission Date: 20061208
  Serious: Yes (Hospitalization)
  Sender: FDA-Public Use
  Company Number: None

PATIENT
  Age: 55 Year
  Sex: Male
  Weight: 78.9259 kg

DRUGS (6)
  1. SORAFENIB    200 MG [Suspect]
     Indication: METASTATIC RENAL CELL CARCINOMA
     Dosage: 400 MG   BID   PO
     Route: 048
     Dates: start: 20060818, end: 20060907
  2. LOVASTATIN [Concomitant]
  3. SENOKOT [Concomitant]
  4. PREDNISONE [Concomitant]
  5. PROMETHAZINE [Concomitant]
  6. RANITIDINE [Concomitant]

REACTIONS (5)
  - LABORATORY TEST ABNORMAL [None]
  - NAUSEA [None]
  - PYREXIA [None]
  - RASH MACULAR [None]
  - VOMITING [None]
